FAERS Safety Report 12923395 (Version 4)
Quarter: 2017Q1

REPORT INFORMATION
  Report Type: Spontaneous
  Country: NL (occurrence: NL)
  Receive Date: 20161109
  Receipt Date: 20170203
  Transmission Date: 20170428
  Serious: Yes (Death, Hospitalization, Other)
  Sender: FDA-Public Use
  Company Number: NL-ELI_LILLY_AND_COMPANY-NL201611002253

PATIENT
  Sex: Female

DRUGS (3)
  1. ZYPADHERA [Suspect]
     Active Substance: OLANZAPINE PAMOATE
     Dosage: 405 MG, 2/M
     Route: 030
     Dates: start: 20150828, end: 20160813
  2. SEMAP [Concomitant]
     Active Substance: PENFLURIDOL
     Indication: PRODUCT USED FOR UNKNOWN INDICATION
     Dosage: UNK, UNKNOWN
     Route: 065
  3. ZYPADHERA [Suspect]
     Active Substance: OLANZAPINE PAMOATE
     Indication: SCHIZOPHRENIA
     Dosage: 300 MG, 2/M
     Route: 030
     Dates: start: 201207

REACTIONS (5)
  - Cardiac disorder [Fatal]
  - Drug level above therapeutic [Unknown]
  - Prescribed overdose [Unknown]
  - Psychiatric decompensation [Unknown]
  - Speech disorder [Unknown]

NARRATIVE: CASE EVENT DATE: 20160819
